FAERS Safety Report 18147518 (Version 1)
Quarter: 2020Q3

REPORT INFORMATION
  Report Type: Report from Study
  Country: ES (occurrence: ES)
  Receive Date: 20200813
  Receipt Date: 20200813
  Transmission Date: 20201103
  Serious: Yes (Hospitalization, Other)
  Sender: FDA-Public Use
  Company Number: ES-JNJFOC-20200807080

PATIENT

DRUGS (2)
  1. INVOKANA [Suspect]
     Active Substance: CANAGLIFLOZIN
     Route: 048
  2. INVOKANA [Suspect]
     Active Substance: CANAGLIFLOZIN
     Indication: TYPE 2 DIABETES MELLITUS
     Route: 048

REACTIONS (9)
  - Fracture [Unknown]
  - Hypoglycaemia [Unknown]
  - Fall [Unknown]
  - Hypotension [Unknown]
  - Polycythaemia [Unknown]
  - Dehydration [Unknown]
  - Urinary tract infection [Unknown]
  - Dizziness postural [Unknown]
  - Genital infection fungal [Unknown]
